FAERS Safety Report 19385889 (Version 2)
Quarter: 2021Q3

REPORT INFORMATION
  Report Type: Spontaneous
  Country: IE (occurrence: IE)
  Receive Date: 20210608
  Receipt Date: 20210704
  Transmission Date: 20211014
  Serious: Yes (Disabling, Other)
  Sender: FDA-Public Use
  Company Number: IE-ORGANON-O2106IRL000473

PATIENT
  Age: 3 Year
  Sex: Female

DRUGS (3)
  1. VENTOLIN [Concomitant]
     Active Substance: ALBUTEROL SULFATE
     Dosage: UNK
  2. SINGULAIR [Suspect]
     Active Substance: MONTELUKAST SODIUM
     Indication: ASTHMA
     Dosage: ONE TABLET AT NIGHT
     Route: 048
     Dates: start: 20171129, end: 20180223
  3. BECOTIDE [Concomitant]
     Active Substance: BECLOMETHASONE DIPROPIONATE
     Dosage: UNK

REACTIONS (6)
  - Nightmare [Recovering/Resolving]
  - Anxiety [Not Recovered/Not Resolved]
  - Phobic avoidance [Recovering/Resolving]
  - Emotional disorder [Not Recovered/Not Resolved]
  - Anger [Not Recovered/Not Resolved]
  - Hallucination [Recovering/Resolving]

NARRATIVE: CASE EVENT DATE: 20171129
